FAERS Safety Report 20621094 (Version 2)
Quarter: 2022Q2

REPORT INFORMATION
  Report Type: Spontaneous
  Country: US (occurrence: US)
  Receive Date: 20220322
  Receipt Date: 20220620
  Transmission Date: 20220721
  Serious: No
  Sender: FDA-Public Use
  Company Number: US-NOVOPROD-898572

PATIENT
  Sex: Female

DRUGS (2)
  1. WEGOVY [Suspect]
     Active Substance: SEMAGLUTIDE
     Indication: Weight control
     Dosage: 0.25 MG
     Route: 058
  2. WEGOVY [Suspect]
     Active Substance: SEMAGLUTIDE
     Dosage: 1 MG
     Route: 058

REACTIONS (6)
  - Heavy menstrual bleeding [Unknown]
  - Dysmenorrhoea [Unknown]
  - Intermenstrual bleeding [Unknown]
  - Constipation [Unknown]
  - Diarrhoea [Unknown]
  - Menstruation irregular [Unknown]
